FAERS Safety Report 25154319 (Version 1)
Quarter: 2025Q2

REPORT INFORMATION
  Report Type: Spontaneous
  Country: CA (occurrence: CA)
  Receive Date: 20250403
  Receipt Date: 20250403
  Transmission Date: 20250716
  Serious: Yes (Other)
  Sender: ORGANON
  Company Number: CA-ORGANON-O2504CAN000169

PATIENT
  Age: 43 Year
  Sex: Female

DRUGS (8)
  1. SINGULAIR [Suspect]
     Active Substance: MONTELUKAST SODIUM
     Indication: Cold urticaria
     Route: 065
  2. SINGULAIR [Suspect]
     Active Substance: MONTELUKAST SODIUM
     Indication: Anaphylactic reaction
  3. DIPHENHYDRAMINE [Suspect]
     Active Substance: DIPHENHYDRAMINE
     Indication: Cold urticaria
     Dosage: 50 MILLIGRAM, TID (3 EVERY 1 DAYS)
     Route: 065
  4. DIPHENHYDRAMINE [Suspect]
     Active Substance: DIPHENHYDRAMINE
     Indication: Anaphylactic reaction
  5. KETOTIFEN [Suspect]
     Active Substance: KETOTIFEN
     Indication: Cold urticaria
     Dosage: 4 MILLIGRAM, BID (2 EVERY 1 DAYS)
     Route: 065
  6. KETOTIFEN [Suspect]
     Active Substance: KETOTIFEN
     Indication: Anaphylactic reaction
  7. RANITIDINE [Suspect]
     Active Substance: RANITIDINE
     Indication: Cold urticaria
     Route: 065
  8. RANITIDINE [Suspect]
     Active Substance: RANITIDINE
     Indication: Anaphylactic reaction

REACTIONS (1)
  - Drug ineffective [Unknown]
